FAERS Safety Report 24731958 (Version 2)
Quarter: 2024Q4

REPORT INFORMATION
  Report Type: Spontaneous
  Country: AR (occurrence: AR)
  Receive Date: 20241213
  Receipt Date: 20241220
  Transmission Date: 20250114
  Serious: Yes (Other)
  Sender: MYLAN
  Company Number: AR-MYLANLABS-2024M1105227

PATIENT
  Age: 16 Year
  Sex: Male

DRUGS (7)
  1. CLOZAPINE [Suspect]
     Active Substance: CLOZAPINE
     Indication: Schizophrenia
     Dosage: 75 MILLIGRAM, QD (DAILY)
     Route: 065
     Dates: start: 20241105
  2. HALOPERIDOL [Concomitant]
     Active Substance: HALOPERIDOL
     Dosage: 10 MILLIGRAM, QD (0-0-1-1/2-1/2, PER DAY)
     Route: 048
  3. BIPERIDEN [Concomitant]
     Active Substance: BIPERIDEN
     Dosage: 6 MILLIGRAM, QD (3-0-0-0-0, PER DAY)
     Route: 048
  4. VALPROIC ACID [Concomitant]
     Active Substance: VALPROIC ACID
     Dosage: 1500 MILLIGRAM, QD (1-1-0-1, PER DAY)
     Route: 048
  5. QUETIAPINE [Concomitant]
     Active Substance: QUETIAPINE
     Dosage: 600 MILLIGRAM, QD (1/2-1/2-1-1-1, PER DAY)
     Route: 048
  6. CLONAZEPAM [Concomitant]
     Active Substance: CLONAZEPAM
     Dosage: 6 MILLIGRAM, QD (1/2-1/2-1-1-1, PER DAY)
     Route: 048
  7. RISPERIDONE [Concomitant]
     Active Substance: RISPERIDONE
     Dosage: 6 MILLIGRAM, QD  (1-1-0-1, PER DAY)
     Route: 048

REACTIONS (2)
  - Neutropenia [Recovered/Resolved]
  - Leukocytosis [Recovered/Resolved]

NARRATIVE: CASE EVENT DATE: 20241120
